FAERS Safety Report 9057973 (Version 2)
Quarter: 2013Q1

REPORT INFORMATION
  Report Type: Spontaneous
  Country: JP (occurrence: JP)
  Receive Date: 20130210
  Receipt Date: 20130220
  Transmission Date: 20140127
  Serious: Yes (Other)
  Sender: FDA-Public Use
  Company Number: JP-UCBSA-060038

PATIENT
  Age: 23 Year
  Sex: Female
  Weight: 53 kg

DRUGS (5)
  1. E KEPPRA [Suspect]
     Indication: JUVENILE MYOCLONIC EPILEPSY
     Route: 048
     Dates: start: 20120619
  2. E KEPPRA [Suspect]
     Indication: JUVENILE MYOCLONIC EPILEPSY
     Route: 048
     Dates: start: 20120613, end: 20120618
  3. DEPAKENE-R [Concomitant]
     Indication: JUVENILE MYOCLONIC EPILEPSY
     Dosage: 300 MG DAILY
     Route: 048
     Dates: start: 2006
  4. LAMICTAL [Concomitant]
     Indication: JUVENILE MYOCLONIC EPILEPSY
     Dosage: DAILY DOSE: 150 MG
     Route: 048
     Dates: start: 200907
  5. RIVOTRIL [Concomitant]
     Indication: JUVENILE MYOCLONIC EPILEPSY
     Dosage: DAILY DOSE: 1.5 MG
     Route: 048
     Dates: start: 2006

REACTIONS (3)
  - Ileus paralytic [Recovered/Resolved]
  - Beta haemolytic streptococcal infection [Recovering/Resolving]
  - Exposure during pregnancy [Recovered/Resolved]
